FAERS Safety Report 8338529-6 (Version None)
Quarter: 2012Q2

REPORT INFORMATION
  Report Type: 
  Country: None (occurrence: None)
  Receive Date: 20120504
  Receipt Date: 20120424
  Transmission Date: 20120825
  Serious: Yes (Hospitalization)
  Sender: FDA-Public Use
  Company Number: US-BAXTER-2012BAX003768

PATIENT
  Sex: Female

DRUGS (3)
  1. GAMMAGARD LIQUID [Suspect]
  2. GAMMAGARD LIQUID [Suspect]
     Indication: PRIMARY IMMUNODEFICIENCY SYNDROME
     Route: 042
  3. GAMMAGARD LIQUID [Suspect]
     Route: 042
     Dates: start: 20120223

REACTIONS (3)
  - SKIN DISCOLOURATION [None]
  - OEDEMA PERIPHERAL [None]
  - CELLULITIS [None]
